FAERS Safety Report 9197187 (Version 2)
Quarter: 2013Q2

REPORT INFORMATION
  Report Type: Spontaneous
  Country: US (occurrence: US)
  Receive Date: 20130328
  Receipt Date: 20130410
  Transmission Date: 20140414
  Serious: Yes (Other)
  Sender: FDA-Public Use
  Company Number: US-PERRIGO-13US002837

PATIENT
  Age: 1 Year
  Sex: Female
  Weight: 11.79 kg

DRUGS (2)
  1. ACETAMINOPHEN CHILD CHERRY 32 MG/ML 175 [Suspect]
     Indication: ACCIDENTAL EXPOSURE TO PRODUCT
     Dosage: 1920 MG, SINGLE
     Route: 048
     Dates: start: 20130318, end: 20130318
  2. ACETAMINOPHEN CHILD CHERRY 32 MG/ML 175 [Suspect]
     Indication: PYREXIA
     Dosage: 160 MG, PRN
     Route: 048

REACTIONS (2)
  - Accidental overdose [Recovered/Resolved]
  - No adverse event [Unknown]
